FAERS Safety Report 23416382 (Version 1)
Quarter: 2024Q1

REPORT INFORMATION
  Report Type: Spontaneous
  Country: GB (occurrence: GB)
  Receive Date: 20240118
  Receipt Date: 20240118
  Transmission Date: 20240410
  Serious: Yes (Hospitalization)
  Sender: FDA-Public Use
  Company Number: GB-MYLANLABS-2023M1134238

PATIENT
  Sex: Female

DRUGS (6)
  1. CLOZARIL [Suspect]
     Active Substance: CLOZAPINE
     Indication: Borderline personality disorder
     Dosage: UNK
     Route: 048
     Dates: start: 20221109
  2. CLOZARIL [Suspect]
     Active Substance: CLOZAPINE
     Indication: Schizophrenia
     Dosage: 225 MILLIGRAM (NOCTE)
     Route: 048
     Dates: start: 202305
  3. LITHIUM [Concomitant]
     Active Substance: LITHIUM
     Indication: Product used for unknown indication
     Dosage: 800 MILLIGRAM, PM (NOCTE)
     Route: 065
  4. ARIPIPRAZOLE [Concomitant]
     Active Substance: ARIPIPRAZOLE
     Indication: Product used for unknown indication
     Dosage: 10 MILLIGRAM, QD
     Route: 065
  5. ESCITALOPRAM [Concomitant]
     Active Substance: ESCITALOPRAM OXALATE
     Indication: Product used for unknown indication
     Dosage: 20 MILLIGRAM, QD
     Route: 065
  6. HYOSCINE HYDROBROMIDE TRIHYDRATE [Concomitant]
     Indication: Product used for unknown indication
     Dosage: 300 MICROGRAM, TID
     Route: 065

REACTIONS (2)
  - Hospitalisation [Recovered/Resolved]
  - Off label use [Unknown]
